FAERS Safety Report 12523076 (Version 3)
Quarter: 2016Q3

REPORT INFORMATION
  Report Type: Report from Study
  Country: US (occurrence: US)
  Receive Date: 20160701
  Receipt Date: 20160921
  Transmission Date: 20161109
  Serious: Yes (Death, Life-Threatening, Hospitalization, Other)
  Sender: FDA-Public Use
  Company Number: US-BRISTOL-MYERS SQUIBB COMPANY-BMS-2016-045934

PATIENT
  Age: 79 Year
  Sex: Male
  Weight: 73.9 kg

DRUGS (12)
  1. NIVOLUMAB [Suspect]
     Active Substance: NIVOLUMAB
     Dosage: 1 UNK, UNK
     Route: 065
     Dates: start: 20160517, end: 20160517
  2. DEXAMETHASONE. [Concomitant]
     Active Substance: DEXAMETHASONE
     Indication: PNEUMONIA
     Dosage: 10 MG, QD
     Route: 042
     Dates: start: 20160606, end: 20160606
  3. CALCIUM [Concomitant]
     Active Substance: CALCIUM
     Indication: HYPOCALCAEMIA
     Dosage: 1000 MG, QD
     Route: 048
     Dates: start: 20160517
  4. NIVOLUMAB [Suspect]
     Active Substance: NIVOLUMAB
     Indication: NON-SMALL CELL LUNG CANCER
     Dosage: 240 MG, UNK
     Route: 042
     Dates: start: 20160419
  5. CITALOPRAM [Concomitant]
     Active Substance: CITALOPRAM HYDROBROMIDE
     Dosage: UNK
     Route: 048
     Dates: start: 20160602
  6. CITALOPRAM [Concomitant]
     Active Substance: CITALOPRAM HYDROBROMIDE
     Indication: DEPRESSION
     Dosage: UNK
     Route: 048
     Dates: start: 20160314, end: 20160503
  7. DECADRON [Concomitant]
     Active Substance: DEXAMETHASONE
     Indication: BRAIN OEDEMA
     Dosage: 20 MG, QD
     Route: 042
     Dates: start: 20160404, end: 20160406
  8. LORAZEPAM. [Concomitant]
     Active Substance: LORAZEPAM
     Indication: ANXIETY
     Dosage: 2 MG, QD
     Route: 048
     Dates: start: 20160404, end: 20160406
  9. HYDROMORPHONE [Concomitant]
     Active Substance: HYDROMORPHONE
     Indication: PAIN
     Dosage: 12 MG, QD
     Route: 042
     Dates: start: 20160404, end: 20160406
  10. NIVOLUMAB [Suspect]
     Active Substance: NIVOLUMAB
     Dosage: 1 UNK, UNK
     Route: 065
     Dates: start: 20160503, end: 20160503
  11. ERLOTINIB [Concomitant]
     Active Substance: ERLOTINIB
     Indication: NON-SMALL CELL LUNG CANCER
     Dosage: 1 DF, UNK
     Route: 065
     Dates: start: 20160419, end: 20160602
  12. AZITHROMYCIN ANHYDROUS. [Concomitant]
     Active Substance: AZITHROMYCIN ANHYDROUS
     Indication: PNEUMONIA
     Dosage: UNK
     Route: 048
     Dates: start: 20160531

REACTIONS (1)
  - Pneumonia [Fatal]

NARRATIVE: CASE EVENT DATE: 20160606
